FAERS Safety Report 22333305 (Version 2)
Quarter: 2023Q4

REPORT INFORMATION
  Report Type: Other
  Country: US (occurrence: US)
  Receive Date: 20230517
  Receipt Date: 20231026
  Transmission Date: 20240110
  Serious: No
  Sender: FDA-Public Use
  Company Number: US-TRAVERE-2023TVT00128

PATIENT
  Age: 75 Year
  Sex: Male

DRUGS (2)
  1. FILSPARI [Suspect]
     Active Substance: SPARSENTAN
     Indication: IgA nephropathy
     Route: 048
     Dates: start: 20230428
  2. FILSPARI [Suspect]
     Active Substance: SPARSENTAN
     Dosage: 2 -200MG DOSE TABLETS OF FILSPARI
     Route: 048

REACTIONS (4)
  - Asthenia [Unknown]
  - Weight decreased [Unknown]
  - Hypotension [Unknown]
  - Abdominal pain lower [Unknown]

NARRATIVE: CASE EVENT DATE: 20230501
